FAERS Safety Report 10481081 (Version 1)
Quarter: 2014Q3

REPORT INFORMATION
  Report Type: Spontaneous
  Country: US (occurrence: US)
  Receive Date: 20140929
  Receipt Date: 20140929
  Transmission Date: 20150326
  Serious: No
  Sender: FDA-Public Use
  Company Number: US-PFIZER INC-2014267962

PATIENT
  Age: 79 Year
  Sex: Male
  Weight: 81 kg

DRUGS (4)
  1. TAMSULOSIN [Concomitant]
     Active Substance: TAMSULOSIN
     Dosage: 0.4 MG, DAILY
  2. INDAPAMIDE. [Concomitant]
     Active Substance: INDAPAMIDE
     Indication: DYSURIA
     Dosage: 2.5 MG, UNK
  3. CELEBREX [Suspect]
     Active Substance: CELECOXIB
     Indication: RHEUMATOID ARTHRITIS
     Dosage: UNK
  4. NAPROXEN SODIUM. [Suspect]
     Active Substance: NAPROXEN SODIUM
     Indication: PAIN
     Dosage: 500 MG, 2X/DAY
     Dates: start: 2014, end: 20140924

REACTIONS (3)
  - Peripheral swelling [Not Recovered/Not Resolved]
  - Tremor [Unknown]
  - Drug ineffective [Unknown]
